FAERS Safety Report 6112061-2 (Version None)
Quarter: 2009Q1

REPORT INFORMATION
  Report Type: 
  Country: None (occurrence: None)
  Receive Date: 20090311
  Receipt Date: 20090211
  Transmission Date: 20090719
  Serious: Yes (Hospitalization)
  Sender: FDA-Public Use
  Company Number: US-PFIZER INC-2009168998

PATIENT
  Sex: Male
  Weight: 77.551 kg

DRUGS (5)
  1. BLINDED *PLACEBO [Suspect]
     Indication: HIV INFECTION
     Dosage: UNK
     Route: 048
     Dates: start: 20051025, end: 20060316
  2. BLINDED MARAVIROC [Suspect]
     Indication: HIV INFECTION
     Dosage: UNK
     Route: 048
     Dates: start: 20051025, end: 20060316
  3. CALCIUM WITH VITAMIN D [Concomitant]
     Dosage: UNK
     Route: 048
     Dates: start: 20060901
  4. DARUNAVIR [Concomitant]
     Dosage: UNK
     Route: 048
     Dates: start: 20070529
  5. TESTOSTERONE [Concomitant]
     Dosage: UNK
     Route: 062
     Dates: start: 20061214

REACTIONS (1)
  - SIALOADENITIS [None]
